FAERS Safety Report 25960597 (Version 1)
Quarter: 2025Q4

REPORT INFORMATION
  Report Type: Spontaneous
  Country: US (occurrence: US)
  Receive Date: 20251027
  Receipt Date: 20251027
  Transmission Date: 20260117
  Serious: Yes (Other)
  Sender: SANOFI AVENTIS
  Company Number: US-SANOFI-02690262

PATIENT
  Age: 62 Year
  Sex: Female

DRUGS (1)
  1. LOVENOX [Suspect]
     Active Substance: ENOXAPARIN SODIUM
     Indication: Abnormal clotting factor
     Dosage: UNK

REACTIONS (5)
  - Neuropathy peripheral [Unknown]
  - COVID-19 [Unknown]
  - Muscular weakness [Unknown]
  - C-reactive protein increased [Unknown]
  - Condition aggravated [Unknown]

NARRATIVE: CASE EVENT DATE: 20251014
